FAERS Safety Report 14039312 (Version 1)
Quarter: 2017Q4

REPORT INFORMATION
  Report Type: Spontaneous
  Country: SE (occurrence: SE)
  Receive Date: 20171004
  Receipt Date: 20171004
  Transmission Date: 20180321
  Serious: Yes (Other)
  Sender: FDA-Public Use
  Company Number: SE-BAUSCH-BL-2017-028538

PATIENT
  Age: 69 Year
  Sex: Female

DRUGS (5)
  1. OMEPRAZOL [Concomitant]
     Active Substance: OMEPRAZOLE
     Indication: PRODUCT USED FOR UNKNOWN INDICATION
  2. SOBRIL [Concomitant]
     Active Substance: OXAZEPAM
     Indication: PRODUCT USED FOR UNKNOWN INDICATION
  3. KOFFAZON [Concomitant]
     Indication: PRODUCT USED FOR UNKNOWN INDICATION
  4. ZYCLARA [Suspect]
     Active Substance: IMIQUIMOD
     Indication: ACTINIC KERATOSIS
     Dosage: IN EVENING
     Route: 065
     Dates: start: 20170913, end: 20170922
  5. SAROTEN [Concomitant]
     Active Substance: AMITRIPTYLINE
     Indication: PRODUCT USED FOR UNKNOWN INDICATION

REACTIONS (7)
  - Malaise [Recovering/Resolving]
  - Decreased appetite [Unknown]
  - Fatigue [Recovering/Resolving]
  - Pain [Recovered/Resolved]
  - Condition aggravated [Unknown]
  - Wound infection [Unknown]
  - Blister [Unknown]

NARRATIVE: CASE EVENT DATE: 201709
